FAERS Safety Report 21983565 (Version 2)
Quarter: 2023Q2

REPORT INFORMATION
  Report Type: Spontaneous
  Country: US (occurrence: US)
  Receive Date: 20230213
  Receipt Date: 20230615
  Transmission Date: 20230722
  Serious: Yes (Hospitalization, Other)
  Sender: FDA-Public Use
  Company Number: US-BRISTOL-MYERS SQUIBB COMPANY-2023-019692

PATIENT
  Age: 52 Year
  Sex: Male
  Weight: 118.75 kg

DRUGS (1)
  1. POMALYST [Suspect]
     Active Substance: POMALIDOMIDE
     Indication: Plasma cell myeloma
     Route: 048
     Dates: start: 20200220

REACTIONS (2)
  - Pneumonia bacterial [Recovering/Resolving]
  - White blood cell count decreased [Recovered/Resolved]
